FAERS Safety Report 5383313-9 (Version None)
Quarter: 2007Q3

REPORT INFORMATION
  Report Type: 
  Country: None (occurrence: None)
  Receive Date: 20070710
  Receipt Date: 20070628
  Transmission Date: 20080115
  Serious: Yes (Hospitalization)
  Sender: FDA-Public Use
  Company Number: SG-PFIZER INC-2007053461

PATIENT
  Age: 32 Year
  Sex: Female
  Weight: 85.9 kg

DRUGS (4)
  1. ZITHROMAX [Suspect]
     Route: 048
     Dates: start: 20070123, end: 20070124
  2. ERYTHROMYCIN [Suspect]
     Indication: PYREXIA
     Route: 048
  3. ERYTHROMYCIN [Suspect]
     Indication: PHARYNGOLARYNGEAL PAIN
  4. IBUPROFEN [Suspect]
     Indication: PYREXIA
     Route: 048
     Dates: start: 20070125, end: 20070125

REACTIONS (4)
  - EYE SWELLING [None]
  - HYPERHIDROSIS [None]
  - PYREXIA [None]
  - RHINORRHOEA [None]
